FAERS Safety Report 16147933 (Version 1)
Quarter: 2019Q2

REPORT INFORMATION
  Report Type: Spontaneous
  Country: US (occurrence: US)
  Receive Date: 20190402
  Receipt Date: 20190402
  Transmission Date: 20190711
  Serious: Yes (Hospitalization)
  Sender: FDA-Public Use
  Company Number: US-JNJFOC-20190132752

PATIENT
  Sex: Male
  Weight: 10.89 kg

DRUGS (2)
  1. AVEENO BABY CALMING COMFORT LOTION [Concomitant]
     Indication: PRODUCT USED FOR UNKNOWN INDICATION
     Route: 061
  2. AVEENO BABY ECZEMA THERAPY SOOTHING BATH TREATMENT [Suspect]
     Active Substance: OATMEAL
     Indication: PRODUCT USED FOR UNKNOWN INDICATION
     Dosage: 1 PACKET
     Route: 061

REACTIONS (1)
  - Application site reaction [Recovered/Resolved]
